FAERS Safety Report 13993392 (Version 1)
Quarter: 2017Q3

REPORT INFORMATION
  Report Type: Spontaneous
  Country: FR (occurrence: FR)
  Receive Date: 20170920
  Receipt Date: 20170920
  Transmission Date: 20171128
  Serious: Yes (Hospitalization)
  Sender: FDA-Public Use
  Company Number: FR-JNJFOC-20170918942

PATIENT
  Age: 14 Year
  Sex: Male

DRUGS (6)
  1. CONCERTA [Concomitant]
     Active Substance: METHYLPHENIDATE HYDROCHLORIDE
     Indication: ATTENTION DEFICIT/HYPERACTIVITY DISORDER
     Route: 048
  2. ATARAX [Suspect]
     Active Substance: HYDROXYZINE HYDROCHLORIDE
     Indication: PAIN
     Route: 065
     Dates: start: 20170330, end: 20170330
  3. TOPALGIC [Suspect]
     Active Substance: TRAMADOL HYDROCHLORIDE
     Indication: PAIN
     Route: 065
     Dates: start: 20170330
  4. NITROUS OXIDE. [Suspect]
     Active Substance: NITROUS OXIDE
     Indication: PAIN
     Route: 055
     Dates: start: 20170330, end: 20170330
  5. NALBUPHINE [Suspect]
     Active Substance: NALBUPHINE
     Indication: PAIN
     Route: 065
     Dates: start: 20170330, end: 20170330
  6. MIDAZOLAM [Suspect]
     Active Substance: MIDAZOLAM HYDROCHLORIDE
     Indication: PAIN
     Route: 065
     Dates: start: 20170330, end: 20170330

REACTIONS (2)
  - Hyperaesthesia [Recovered/Resolved]
  - Hallucination, visual [Recovered/Resolved]

NARRATIVE: CASE EVENT DATE: 20170330
